FAERS Safety Report 7171056-0 (Version None)
Quarter: 2010Q4

REPORT INFORMATION
  Report Type: 
  Country: None (occurrence: None)
  Receive Date: 20101217
  Receipt Date: 20101209
  Transmission Date: 20110411
  Serious: Yes (Other)
  Sender: FDA-Public Use
  Company Number: GXKR2010GB13997

PATIENT
  Age: 72 Year
  Sex: Female

DRUGS (8)
  1. FUROSEMIDE (NGX) [Suspect]
     Indication: HYPERTENSION
     Route: 065
  2. RAMIPRIL [Suspect]
     Indication: HYPERTENSION
     Route: 065
  3. DIAZEPAM [Concomitant]
     Route: 065
  4. ATORVASTATIN [Concomitant]
     Route: 065
  5. PAROXETINE [Concomitant]
     Route: 065
  6. ASPIRIN [Concomitant]
     Route: 065
  7. PROCHLORPERAZINE [Concomitant]
     Route: 065
  8. ACETAMINOPHEN WITH PROPOXYPHENE HCL TAB [Concomitant]
     Route: 065

REACTIONS (4)
  - ASTHENIA [None]
  - CAROTID ARTERY OCCLUSION [None]
  - MUSCLE TWITCHING [None]
  - TRANSIENT ISCHAEMIC ATTACK [None]
